FAERS Safety Report 9123060 (Version 1)
Quarter: 2013Q1

REPORT INFORMATION
  Report Type: Spontaneous
  Country: BR (occurrence: BR)
  Receive Date: 20130114
  Receipt Date: 20130114
  Transmission Date: 20140127
  Serious: Yes (Other)
  Sender: FDA-Public Use
  Company Number: PHHY2013BR002895

PATIENT
  Sex: Female

DRUGS (1)
  1. RITALINA [Suspect]
     Dosage: 10 MG DAILY

REACTIONS (1)
  - Attention deficit/hyperactivity disorder [Unknown]
